FAERS Safety Report 7799337-8 (Version None)
Quarter: 2011Q4

REPORT INFORMATION
  Report Type: 
  Country: None (occurrence: None)
  Receive Date: 20111006
  Receipt Date: 20110927
  Transmission Date: 20120403
  Serious: Yes (Other)
  Sender: FDA-Public Use
  Company Number: PHHY2011FR86032

PATIENT
  Age: 53 Year
  Sex: Male

DRUGS (3)
  1. DANAPAROID SODIUM [Concomitant]
     Indication: LIVER TRANSPLANT
  2. HEPARIN [Suspect]
     Indication: LIVER TRANSPLANT
  3. ENOXAPARIN [Suspect]
     Indication: LIVER TRANSPLANT

REACTIONS (6)
  - HEPATIC FUNCTION ABNORMAL [None]
  - BUDD-CHIARI SYNDROME [None]
  - HEPATIC INFARCTION [None]
  - HEPARIN-INDUCED THROMBOCYTOPENIA [None]
  - VENOUS THROMBOSIS [None]
  - THROMBOCYTOPENIA [None]
